FAERS Safety Report 18907515 (Version 1)
Quarter: 2021Q1

REPORT INFORMATION
  Report Type: Spontaneous
  Country: US (occurrence: US)
  Receive Date: 20210218
  Receipt Date: 20210218
  Transmission Date: 20210420
  Serious: No
  Sender: FDA-Public Use
  Company Number: US-ASTRAZENECA-2021A012547

PATIENT
  Age: 17660 Day
  Sex: Female
  Weight: 46.7 kg

DRUGS (3)
  1. SYMBICORT [Suspect]
     Active Substance: BUDESONIDE\FORMOTEROL FUMARATE DIHYDRATE
     Indication: EMPHYSEMA
     Dosage: TWO PUFFS TWICE DAILY
     Route: 055
     Dates: start: 2018
  2. MIDRODRINE [Concomitant]
     Indication: HYPOTENSION
     Route: 048
     Dates: start: 2018
  3. ALBUTEROL. [Concomitant]
     Active Substance: ALBUTEROL
     Dosage: UNKNOWN
     Route: 065

REACTIONS (3)
  - Intentional device misuse [Unknown]
  - Product taste abnormal [Unknown]
  - Dyspnoea [Unknown]

NARRATIVE: CASE EVENT DATE: 20210111
